FAERS Safety Report 8031449-6 (Version None)
Quarter: 2011Q4

REPORT INFORMATION
  Report Type: 
  Country: None (occurrence: None)
  Receive Date: 20111201
  Receipt Date: 20110927
  Transmission Date: 20120403
  Serious: Yes (Hospitalization)
  Sender: FDA-Public Use
  Company Number: 20110803CINRY2165

PATIENT
  Age: 32 Year
  Sex: Female

DRUGS (1)
  1. CINRYZE [Suspect]
     Indication: PRODUCT USED FOR UNKNOWN INDICATION
     Dosage: UNKNOWN, INTRAVENOUS
     Route: 042

REACTIONS (3)
  - HEREDITARY ANGIOEDEMA [None]
  - ANXIETY [None]
  - CHEST PAIN [None]
